FAERS Safety Report 7068405-0 (Version None)
Quarter: 2010Q4

REPORT INFORMATION
  Report Type: 
  Country: None (occurrence: None)
  Receive Date: 20101028
  Receipt Date: 20101018
  Transmission Date: 20110411
  Serious: Yes (Death, Hospitalization)
  Sender: FDA-Public Use
  Company Number: B0676021A

PATIENT
  Sex: Female

DRUGS (6)
  1. LAMICTAL [Suspect]
     Indication: GLIOBLASTOMA
     Dosage: 50MG PER DAY
     Route: 048
     Dates: start: 20100801, end: 20100907
  2. FERROGRAD C [Concomitant]
     Indication: GLIOBLASTOMA
     Dosage: 605MG PER DAY
     Route: 048
     Dates: start: 20100501, end: 20100907
  3. KEPPRA [Concomitant]
     Indication: GLIOBLASTOMA
     Route: 048
     Dates: start: 20100501, end: 20100801
  4. FLUIMUCIL [Concomitant]
     Indication: GLIOBLASTOMA
     Route: 048
     Dates: start: 20100501, end: 20100907
  5. SOLDESAM [Concomitant]
     Indication: GLIOBLASTOMA
     Route: 042
     Dates: start: 20100501, end: 20100907
  6. RADIOTHERAPY [Concomitant]
     Dates: start: 20100712, end: 20100820

REACTIONS (5)
  - GLIOBLASTOMA [None]
  - MULTI-ORGAN FAILURE [None]
  - RASH GENERALISED [None]
  - SKIN LESION [None]
  - TOXIC EPIDERMAL NECROLYSIS [None]
